FAERS Safety Report 8670411 (Version 2)
Quarter: 2015Q2

REPORT INFORMATION
  Report Type: Report from Study
  Country: US (occurrence: US)
  Receive Date: 20120718
  Receipt Date: 20150629
  Transmission Date: 20150821
  Serious: Yes (Death)
  Sender: FDA-Public Use
  Company Number: US-ROCHE-1087601

PATIENT
  Sex: Male

DRUGS (9)
  1. AVASTIN [Concomitant]
     Active Substance: BEVACIZUMAB
     Route: 050
  2. BETADINE [Concomitant]
     Active Substance: POVIDONE-IODINE
     Route: 065
  3. LUCENTIS [Suspect]
     Active Substance: RANIBIZUMAB
     Indication: AGE-RELATED MACULAR DEGENERATION
     Route: 050
  4. POVIDONE IODINE [Concomitant]
     Active Substance: POVIDONE-IODINE
     Route: 065
  5. LIDOCAINE. [Concomitant]
     Active Substance: LIDOCAINE
     Route: 065
  6. SYSTANE (HYPROMELLOSE 2910 (4000 MPA.S)) [Concomitant]
     Active Substance: HYPROMELLOSE 2910 (4000 MPA.S)
  7. CILOXAN [Concomitant]
     Active Substance: CIPROFLOXACIN HYDROCHLORIDE
  8. PROPARACAINE [Concomitant]
     Active Substance: PROPARACAINE
     Route: 065
  9. ZYMAR [Concomitant]
     Active Substance: GATIFLOXACIN

REACTIONS (2)
  - Death [Fatal]
  - Off label use [Unknown]
